FAERS Safety Report 5432278-X (Version None)
Quarter: 2007Q3

REPORT INFORMATION
  Report Type: 
  Country: None (occurrence: None)
  Receive Date: 20070830
  Receipt Date: 20070821
  Transmission Date: 20080115
  Serious: Yes (Other)
  Sender: FDA-Public Use
  Company Number: GB-PFIZER INC-2007070809

PATIENT
  Age: 43 Year
  Sex: Male

DRUGS (5)
  1. VARENICLINE TABLETS [Suspect]
     Indication: SMOKING CESSATION THERAPY
     Route: 048
     Dates: start: 20070615, end: 20070723
  2. ASPIRIN [Concomitant]
     Dosage: DAILY DOSE:75MG
     Route: 048
  3. ATENOLOL [Concomitant]
     Route: 048
  4. ATORVASTATIN CALCIUM [Concomitant]
     Dosage: DAILY DOSE:80MG
     Route: 048
  5. CANDESARTAN CILEXETIL [Concomitant]
     Dosage: DAILY DOSE:4MG
     Route: 048

REACTIONS (2)
  - ALCOHOL INTERACTION [None]
  - DIZZINESS [None]
